FAERS Safety Report 5836567-6 (Version None)
Quarter: 2008Q3

REPORT INFORMATION
  Report Type: 
  Country: None (occurrence: None)
  Receive Date: 20080807
  Receipt Date: 20080725
  Transmission Date: 20090109
  Serious: Yes (Hospitalization, Other)
  Sender: FDA-Public Use
  Company Number: DE-TYCO HEALTHCARE/MALLINCKRODT-T200801149

PATIENT

DRUGS (9)
  1. FLUOXETINE [Suspect]
     Indication: DEPRESSION
     Dosage: 20 MG, QD
  2. AMILORIDE HCL AND HYDROCHLOROTHIAZIDE [Concomitant]
     Dosage: 5/50 MG
  3. AMILORIDE HCL AND HYDROCHLOROTHIAZIDE [Concomitant]
     Dosage: RESTARTED SIX WEEKS AFTER ADMISSION
  4. ISOSORBIDE DINITRATE [Concomitant]
     Dosage: 40 MG, QD
  5. CHOLECALCIFEROL [Concomitant]
     Dosage: .25 UG, QD
  6. MORPHINE [Concomitant]
     Dosage: 30 MG, TID
  7. OXAZEPAM [Concomitant]
     Dosage: 15 MG, IN THE EVENING
  8. CALCIUM [Concomitant]
     Dosage: 1000 MG, QD
  9. PREDNISONE [Concomitant]
     Dosage: 5 MG, QD

REACTIONS (3)
  - COMA [None]
  - CONVULSION [None]
  - INAPPROPRIATE ANTIDIURETIC HORMONE SECRETION [None]
